FAERS Safety Report 25154781 (Version 1)
Quarter: 2025Q2

REPORT INFORMATION
  Report Type: Spontaneous
  Country: IN (occurrence: IN)
  Receive Date: 20250403
  Receipt Date: 20250403
  Transmission Date: 20250717
  Serious: Yes (Hospitalization)
  Sender: MYLAN
  Company Number: IN-MYLANLABS-2025M1027231

PATIENT
  Age: 16 Year
  Sex: Male

DRUGS (13)
  1. MYCOPHENOLATE MOFETIL [Suspect]
     Active Substance: MYCOPHENOLATE MOFETIL
     Indication: Systemic lupus erythematosus
     Dosage: 1200 MILLIGRAM/SQ. METER, QD ( INITIALLY SWITCHED TO OTHER THERAPY)
  2. MYCOPHENOLATE MOFETIL [Suspect]
     Active Substance: MYCOPHENOLATE MOFETIL
     Indication: Lupus nephritis
  3. MYCOPHENOLATE MOFETIL [Suspect]
     Active Substance: MYCOPHENOLATE MOFETIL
     Indication: Gangrene
  4. CLOPIDOGREL [Suspect]
     Active Substance: CLOPIDOGREL BISULFATE
     Indication: Gangrene
     Dosage: 75 MILLIGRAM, QD
  5. METHYLPREDNISOLONE [Suspect]
     Active Substance: METHYLPREDNISOLONE
     Indication: Systemic lupus erythematosus
  6. METHYLPREDNISOLONE [Suspect]
     Active Substance: METHYLPREDNISOLONE
     Indication: Lupus nephritis
  7. METHYLPREDNISOLONE [Suspect]
     Active Substance: METHYLPREDNISOLONE
     Indication: Gangrene
  8. HYDROXYCHLOROQUINE [Suspect]
     Active Substance: HYDROXYCHLOROQUINE
     Indication: Systemic lupus erythematosus
     Dosage: 200 MILLIGRAM, QD
  9. HYDROXYCHLOROQUINE [Suspect]
     Active Substance: HYDROXYCHLOROQUINE
     Indication: Lupus nephritis
  10. ENOXAPARIN [Suspect]
     Active Substance: ENOXAPARIN
     Indication: Gangrene
     Dosage: 1 MILLIGRAM/KILOGRAM, BID ( INITIALLY SWITCHED TO OTHER THERAPY)
  11. ENOXAPARIN [Suspect]
     Active Substance: ENOXAPARIN
  12. WARFARIN [Suspect]
     Active Substance: WARFARIN
     Indication: Gangrene
  13. PENTOXIFYLLINE [Suspect]
     Active Substance: PENTOXIFYLLINE
     Indication: Gangrene
     Dosage: 400 MILLIGRAM, BID

REACTIONS (2)
  - Drug ineffective [Unknown]
  - Off label use [Unknown]
